FAERS Safety Report 10196365 (Version 3)
Quarter: 2014Q2

REPORT INFORMATION
  Report Type: Spontaneous
  Country: JP (occurrence: JP)
  Receive Date: 20140527
  Receipt Date: 20140623
  Transmission Date: 20141212
  Serious: Yes (Death)
  Sender: FDA-Public Use
  Company Number: JP-JNJFOC-20140510948

PATIENT
  Age: 39 Year
  Sex: Male
  Weight: 118 kg

DRUGS (4)
  1. XEPLION [Suspect]
     Indication: SCHIZOPHRENIA
     Route: 030
     Dates: start: 20140318, end: 20140318
  2. RISPERIDONE [Concomitant]
     Indication: SCHIZOPHRENIA
     Route: 048
     Dates: start: 20040311, end: 20140322
  3. ZOTEPINE [Concomitant]
     Indication: SCHIZOPHRENIA
     Route: 048
     Dates: start: 20120425, end: 20140322
  4. DEPAKENE-R [Concomitant]
     Indication: SCHIZOPHRENIA
     Route: 048
     Dates: start: 20091212, end: 20140322

REACTIONS (1)
  - Completed suicide [Fatal]
